FAERS Safety Report 21509084 (Version 1)
Quarter: 2022Q4

REPORT INFORMATION
  Report Type: Spontaneous
  Country: CN (occurrence: CN)
  Receive Date: 20221026
  Receipt Date: 20221026
  Transmission Date: 20230112
  Serious: Yes (Death, Life-Threatening, Hospitalization, Other)
  Sender: FDA-Public Use
  Company Number: CN-AMGEN-CHNSP2022181970

PATIENT
  Age: 16 Month
  Sex: Female

DRUGS (6)
  1. FILGRASTIM [Suspect]
     Active Substance: FILGRASTIM
     Indication: Neutropenia
     Dosage: UNK
     Route: 058
  2. FILGRASTIM [Suspect]
     Active Substance: FILGRASTIM
     Indication: Off label use
  3. METHYLPREDNISOLONE [Concomitant]
     Active Substance: METHYLPREDNISOLONE
     Dosage: UNK, 1 TO 2 MG/KG/DAY
  4. TIGECYCLINE [Concomitant]
     Active Substance: TIGECYCLINE
     Dosage: UNK
  5. DAPTOMYCIN [Concomitant]
     Active Substance: DAPTOMYCIN
     Dosage: UNK
  6. VORICONAZOLE [Concomitant]
     Active Substance: VORICONAZOLE
     Dosage: UNK

REACTIONS (13)
  - Death [Fatal]
  - Multiple organ dysfunction syndrome [Unknown]
  - Condition aggravated [Unknown]
  - Neutropenia [Unknown]
  - Inflammation [Unknown]
  - Acinetobacter infection [Unknown]
  - Septic shock [Unknown]
  - Hypotension [Unknown]
  - Anal abscess [Unknown]
  - Body temperature decreased [Unknown]
  - Off label use [Unknown]
  - Pyrexia [Unknown]
  - Swelling face [Unknown]
